FAERS Safety Report 20744818 (Version 1)
Quarter: 2022Q2

REPORT INFORMATION
  Report Type: Spontaneous
  Country: NO (occurrence: NO)
  Receive Date: 20220425
  Receipt Date: 20220425
  Transmission Date: 20220721
  Serious: Yes (Life-Threatening)
  Sender: FDA-Public Use
  Company Number: None

PATIENT
  Age: 52 Year
  Sex: Male

DRUGS (14)
  1. CLINDAMYCIN [Suspect]
     Active Substance: CLINDAMYCIN
     Indication: Antibiotic prophylaxis
     Dosage: 600 MG, SINGLE
     Route: 042
     Dates: start: 20220315, end: 20220315
  2. SUMATRIPTAN [Concomitant]
     Active Substance: SUMATRIPTAN
  3. DIAZEPAM [Concomitant]
     Active Substance: DIAZEPAM
     Route: 048
  4. CISATRACURIUM [Concomitant]
     Active Substance: CISATRACURIUM
     Indication: Anaesthesia procedure
  5. TRAMADOL [Concomitant]
     Active Substance: TRAMADOL
  6. ULTIVA [Concomitant]
     Active Substance: REMIFENTANIL HYDROCHLORIDE
     Indication: Anaesthesia procedure
     Route: 042
     Dates: start: 20220315, end: 20220315
  7. ZOLPIDEM TARTRATE [Concomitant]
     Active Substance: ZOLPIDEM TARTRATE
     Route: 048
  8. OXYCODONE [Concomitant]
     Active Substance: OXYCODONE
  9. OMEPRAZOLE [Concomitant]
     Active Substance: OMEPRAZOLE
  10. VENLAFAXINE HYDROCHLORIDE [Concomitant]
     Active Substance: VENLAFAXINE HYDROCHLORIDE
     Route: 048
  11. ACETAMINOPHEN [Concomitant]
     Active Substance: ACETAMINOPHEN
     Indication: Anaesthesia procedure
     Dosage: 1 G, SINGLE
     Route: 042
     Dates: start: 20220315, end: 20220315
  12. PROPOFOL [Concomitant]
     Active Substance: PROPOFOL
     Indication: Anaesthesia procedure
     Route: 042
     Dates: start: 20220315, end: 20220315
  13. FENTANYL [Concomitant]
     Active Substance: FENTANYL
     Indication: Anaesthesia procedure
  14. REMIFENTANIL [Concomitant]
     Active Substance: REMIFENTANIL
     Indication: Anaesthesia procedure

REACTIONS (1)
  - Bronchospasm [Recovered/Resolved]

NARRATIVE: CASE EVENT DATE: 20220315
